FAERS Safety Report 24580072 (Version 1)
Quarter: 2024Q4

REPORT INFORMATION
  Report Type: Spontaneous
  Country: US (occurrence: None)
  Receive Date: 20241104
  Receipt Date: 20241104
  Transmission Date: 20250115
  Serious: No
  Sender: Public
  Company Number: None

PATIENT
  Age: 59 Year
  Sex: Male

DRUGS (1)
  1. TIRZEPATIDE [Suspect]
     Active Substance: TIRZEPATIDE
     Indication: Weight decreased
     Dosage: OTHER FREQUENCY : QWEEK;?
     Route: 058

REACTIONS (4)
  - Suicidal ideation [None]
  - Abdominal pain [None]
  - Flatulence [None]
  - Vomiting [None]

NARRATIVE: CASE EVENT DATE: 20240822
